FAERS Safety Report 5483698-9 (Version None)
Quarter: 2007Q4

REPORT INFORMATION
  Report Type: 
  Country: None (occurrence: None)
  Receive Date: 20071010
  Receipt Date: 20070926
  Transmission Date: 20080405
  Serious: Yes (Hospitalization, Other)
  Sender: FDA-Public Use
  Company Number: WAES 0708USA04134

PATIENT
  Age: 18 Year
  Sex: Female
  Weight: 51.7101 kg

DRUGS (4)
  1. VORINOSTAT [Suspect]
     Indication: ACUTE MYELOID LEUKAEMIA
     Dosage: 400 MG/DAILY/PO           CAP
     Route: 048
     Dates: start: 20070726, end: 20070801
  2. VORINOSTAT [Suspect]
     Indication: ACUTE MYELOID LEUKAEMIA
     Dosage: 400 MG/DAILY/PO           CAP
     Route: 048
     Dates: start: 20070825, end: 20070831
  3. DECITABINE [Suspect]
     Indication: ACUTE MYELOID LEUKAEMIA
     Dosage: 20 MG/M[2] /DAILY/IV
     Route: 042
     Dates: start: 20070721, end: 20070725
  4. DECITABINE [Suspect]
     Indication: ACUTE MYELOID LEUKAEMIA
     Dosage: 20 MG/M[2] /DAILY/IV
     Route: 042
     Dates: start: 20070820, end: 20070824

REACTIONS (9)
  - ABDOMINAL PAIN [None]
  - CAECITIS [None]
  - CELLULITIS [None]
  - CHEILITIS [None]
  - FEBRILE NEUTROPENIA [None]
  - HERPES SIMPLEX [None]
  - ORAL INTAKE REDUCED [None]
  - PYREXIA [None]
  - WEIGHT DECREASED [None]
